FAERS Safety Report 10725344 (Version 1)
Quarter: 2015Q1

REPORT INFORMATION
  Report Type: Spontaneous
  Country: US (occurrence: US)
  Receive Date: 20150121
  Receipt Date: 20150121
  Transmission Date: 20150721
  Serious: Yes (Hospitalization)
  Sender: FDA-Public Use
  Company Number: PHHY2015US004898

PATIENT
  Age: 33 Year
  Sex: Male

DRUGS (6)
  1. AMLODIPINE [Suspect]
     Active Substance: AMLODIPINE BESYLATE
     Indication: PRODUCT USED FOR UNKNOWN INDICATION
     Route: 065
  2. VITAMIN B6 [Concomitant]
     Active Substance: PYRIDOXINE HYDROCHLORIDE
     Indication: PRODUCT USED FOR UNKNOWN INDICATION
     Dosage: 50 MG, UNK
     Route: 065
  3. RIFAPENTINE [Interacting]
     Active Substance: RIFAPENTINE
     Dosage: 900 MG, UNK
     Route: 065
  4. ISONIAZID. [Suspect]
     Active Substance: ISONIAZID
     Indication: TUBERCULOSIS
     Dosage: 15 MG/KG, UNK
     Route: 065
  5. ISONIAZID. [Suspect]
     Active Substance: ISONIAZID
     Dosage: 900 MG, UNK
     Route: 065
  6. RIFAPENTINE [Interacting]
     Active Substance: RIFAPENTINE
     Indication: TUBERCULOSIS
     Dosage: 750 MG, UNK
     Route: 065

REACTIONS (3)
  - Blood pressure increased [Unknown]
  - Hypertensive crisis [Unknown]
  - Drug interaction [Unknown]
